FAERS Safety Report 5836396-3 (Version None)
Quarter: 2008Q3

REPORT INFORMATION
  Report Type: 
  Country: None (occurrence: None)
  Receive Date: 20080807
  Receipt Date: 20080729
  Transmission Date: 20090109
  Serious: Yes (Hospitalization, Other)
  Sender: FDA-Public Use
  Company Number: US-PURDUE-USA_2008_0034152

PATIENT
  Sex: Female

DRUGS (2)
  1. OXYCONTIN [Suspect]
     Indication: BACK PAIN
     Dosage: 40 MG, Q8H
  2. OXYCODONE HCL [Suspect]
     Indication: BREAKTHROUGH PAIN
     Dosage: 30 MG, PRN

REACTIONS (6)
  - DRUG EFFECT INCREASED [None]
  - INFECTION [None]
  - PLEURAL INFECTION [None]
  - RENAL IMPAIRMENT [None]
  - STUPOR [None]
  - URINARY TRACT INFECTION [None]
